FAERS Safety Report 4559544-4 (Version None)
Quarter: 2005Q1

REPORT INFORMATION
  Report Type: 
  Country: None (occurrence: None)
  Receive Date: 20050119
  Receipt Date: 20050110
  Transmission Date: 20050727
  Serious: Yes (Hospitalization)
  Sender: FDA-Public Use
  Company Number: 2005009765

PATIENT
  Age: 77 Year
  Sex: Male

DRUGS (7)
  1. TAHOR (ATORVASTATIN) [Suspect]
     Indication: HYPERCHOLESTEROLAEMIA
     Dosage: 10 MG (1 IN 1 D), ORAL
     Route: 048
  2. ACARBOSE (ACARBOSE) [Concomitant]
  3. CO-DIOVAN (VALSARTAN) [Concomitant]
  4. LACTOBACILLUS BIFIDUS, LYOPHILIZED (LACTOBACILLUS BIFIDUS, LYOPHILIZED [Concomitant]
  5. OMEPRAZOLE [Concomitant]
  6. HEXAQUINE (NIAOULI OIL, QUININE BENZOATE, THIAMINE HYDROCHLORIDE) [Concomitant]
  7. DILTIAZEM HYDROCHLORIDE [Concomitant]

REACTIONS (13)
  - ABDOMINAL PAIN [None]
  - BLOOD CREATINE PHOSPHOKINASE INCREASED [None]
  - BLOOD LACTATE DEHYDROGENASE INCREASED [None]
  - C-REACTIVE PROTEIN INCREASED [None]
  - DIVERTICULITIS [None]
  - ELECTROCARDIOGRAM ABNORMAL [None]
  - MYOGLOBIN BLOOD INCREASED [None]
  - PYREXIA [None]
  - RHABDOMYOLYSIS [None]
  - TESTICULAR PAIN [None]
  - TROPONIN INCREASED [None]
  - VENTRICULAR HYPERTROPHY [None]
  - VENTRICULAR HYPOKINESIA [None]
